FAERS Safety Report 20415873 (Version 2)
Quarter: 2022Q1

REPORT INFORMATION
  Report Type: Report from Study
  Country: MX (occurrence: MX)
  Receive Date: 20220202
  Receipt Date: 20220214
  Transmission Date: 20220423
  Serious: No
  Sender: FDA-Public Use
  Company Number: MX-NOVARTISPH-NVSC2022MX022224

PATIENT
  Sex: Female
  Weight: 67 kg

DRUGS (6)
  1. EXFORGE HCT [Suspect]
     Active Substance: AMLODIPINE BESYLATE\HYDROCHLOROTHIAZIDE\VALSARTAN
     Indication: Hypertension
     Dosage: 1 DOSAGE FORM, QD (15 DAYS AGO, DID NOT KNOW EXACT DATE)
     Route: 048
  2. ATORVASTATIN [Concomitant]
     Active Substance: ATORVASTATIN
     Indication: Product used for unknown indication
     Dosage: (15 DAYS AGO, DID NOT KNOW EXACT DATE)
     Route: 048
  3. AMLODIPINE [Concomitant]
     Active Substance: AMLODIPINE BESYLATE
     Indication: Product used for unknown indication
     Dosage: (15 DAYS AGO, DID NOT KNOW EXACT DATE)
     Route: 048
  4. ASPIRIN [Concomitant]
     Active Substance: ASPIRIN
     Indication: Product used for unknown indication
     Dosage: (15 DAYS AGO, DID NOT KNOW EXACT DATE)
     Route: 048
  5. PREGABALIN [Concomitant]
     Active Substance: PREGABALIN
     Indication: Product used for unknown indication
     Dosage: (15 DAYS AGO, DID NOT KNOW EXACT DATE)
     Route: 048
  6. XARDIN [Concomitant]
     Indication: Product used for unknown indication
     Dosage: (15 DAYS AGO, DID NOT KNOW EXACT DATE)
     Route: 048

REACTIONS (1)
  - Dizziness [Not Recovered/Not Resolved]
